FAERS Safety Report 9850547 (Version 1)
Quarter: 2013Q4

REPORT INFORMATION
  Report Type: Spontaneous
  Country: US (occurrence: None)
  Receive Date: 20131226
  Receipt Date: 20131226
  Transmission Date: 20140711
  Serious: Yes (Other)
  Sender: FDA-Public Use
  Company Number: PHEH2013US004106

PATIENT
  Age: 64 Year
  Sex: Male

DRUGS (4)
  1. DIOVAN (VALSARTAN) [Suspect]
     Route: 048
  2. POTASSIUM CHLORIDE (POTASSIUM CHLORIDE) [Concomitant]
  3. TRIAMTEREEN/HYDROCHLOOTTHIAZIDE (HYDROCHLOROTHIAZIDE, TRIAMTERENE) [Concomitant]
  4. GEMFIBROZIL (GEMFIBROZIL) [Concomitant]

REACTIONS (2)
  - Blood pressure increased [None]
  - Blood potassium decreased [None]
